FAERS Safety Report 8955719 (Version 2)
Quarter: 2013Q1

REPORT INFORMATION
  Report Type: Spontaneous
  Country: NL (occurrence: None)
  Receive Date: 20121130
  Receipt Date: 20121205
  Transmission Date: 20140127
  Serious: Yes (Hospitalization)
  Sender: FDA-Public Use
  Company Number: 2012-7852

PATIENT
  Age: 47 Year
  Sex: Female

DRUGS (4)
  1. LANREOTIDE [Suspect]
     Indication: NEUROENDOCRINE TUMOUR
     Dosage: 90 MG (90 MG,1 IN 28 D),SUBCUTAENOUS
     Route: 058
     Dates: start: 20110914
  2. TRAMADOL (TRAMADOL) [Concomitant]
  3. FLIXOTIDE(FLUTICASONE PROPIONATE) [Concomitant]
  4. PARACETAMOL(PARACETAMOL) [Concomitant]

REACTIONS (5)
  - Dehydration [None]
  - Influenza [None]
  - Abdominal pain [None]
  - Nausea [None]
  - Vomiting [None]
